FAERS Safety Report 7004956-2 (Version None)
Quarter: 2010Q3

REPORT INFORMATION
  Report Type: 
  Country: None (occurrence: None)
  Receive Date: 20100921
  Receipt Date: 20100916
  Transmission Date: 20110219
  Serious: Yes (Other)
  Sender: FDA-Public Use
  Company Number: JP-BRISTOL-MYERS SQUIBB COMPANY-15291834

PATIENT
  Age: 66 Year
  Sex: Female

DRUGS (4)
  1. PARAPLATIN [Suspect]
     Indication: LUNG ADENOCARCINOMA
     Route: 041
  2. TAXOL [Suspect]
     Indication: LUNG ADENOCARCINOMA
     Route: 041
  3. AVASTIN [Suspect]
     Indication: LUNG ADENOCARCINOMA
     Dosage: INJ
     Route: 041
  4. RADIOTHERAPY [Suspect]
     Indication: LUNG ADENOCARCINOMA

REACTIONS (2)
  - HYPERCAPNIA [None]
  - TRACHEAL DISORDER [None]
